FAERS Safety Report 9185649 (Version 1)
Quarter: 2013Q1

REPORT INFORMATION
  Report Type: Spontaneous
  Country: IT (occurrence: None)
  Receive Date: 20130321
  Receipt Date: 20130321
  Transmission Date: 20140127
  Serious: Yes (Hospitalization)
  Sender: FDA-Public Use
  Company Number: 2013-04851

PATIENT
  Age: 17 Year
  Sex: Male
  Weight: 53 kg

DRUGS (3)
  1. PARACETAMOL (PARACETAMOL) [Suspect]
     Indication: HEADACHE
     Dosage: SINGLE
     Route: 048
     Dates: start: 20130127, end: 20130127
  2. DEPAKIN [Concomitant]
  3. INSULINA [Concomitant]

REACTIONS (2)
  - Confusional state [None]
  - Vomiting [None]
